FAERS Safety Report 14424257 (Version 1)
Quarter: 2018Q1

REPORT INFORMATION
  Report Type: Spontaneous
  Country: US (occurrence: US)
  Receive Date: 20180123
  Receipt Date: 20180123
  Transmission Date: 20180509
  Serious: No
  Sender: FDA-Public Use
  Company Number: US-009507513-1801USA007628

PATIENT
  Sex: Female

DRUGS (1)
  1. ZETIA [Suspect]
     Active Substance: EZETIMIBE

REACTIONS (5)
  - Headache [Unknown]
  - Nausea [Unknown]
  - Fatigue [Unknown]
  - Erythema [Unknown]
  - Influenza like illness [Unknown]
